FAERS Safety Report 5932270-2 (Version None)
Quarter: 2008Q4

REPORT INFORMATION
  Report Type: 
  Country: None (occurrence: None)
  Receive Date: 20081023
  Receipt Date: 20060727
  Transmission Date: 20090506
  Serious: Yes (Hospitalization, Other)
  Sender: FDA-Public Use
  Company Number: 2006AL002246

PATIENT
  Age: 77 Year
  Sex: Male

DRUGS (9)
  1. FLUOXETINE [Suspect]
     Indication: DEPRESSION
     Dosage: 20 MG QD PO
     Route: 048
  2. ACETYLSALICYLIC ACID SRT [Concomitant]
  3. MEBEVERINE [Concomitant]
  4. MOVICOL [Concomitant]
  5. OMEPRAZOLE [Concomitant]
  6. ACETAMINOPHEN [Concomitant]
  7. QVAR 40 [Concomitant]
  8. RAMIPRIL [Concomitant]
  9. SIMVASTATIN [Concomitant]

REACTIONS (2)
  - BLOOD SODIUM DECREASED [None]
  - CONVULSION [None]
